FAERS Safety Report 4704872-2 (Version None)
Quarter: 2005Q3

REPORT INFORMATION
  Report Type: 
  Country: None (occurrence: None)
  Receive Date: 20050701
  Receipt Date: 20040917
  Transmission Date: 20060218
  Serious: Yes (Other)
  Sender: FDA-Public Use
  Company Number: PHBS2004IN15911

PATIENT
  Sex: Male

DRUGS (2)
  1. CLEARINE [Concomitant]
     Dosage: UNK, UNK
     Dates: start: 20040910
  2. GENTEAL (NVO) [Suspect]
     Indication: EYE PAIN
     Dosage: UNK, UNK
     Dates: start: 20040910

REACTIONS (5)
  - ACTIVITIES OF DAILY LIVING IMPAIRED [None]
  - DRUG INEFFECTIVE [None]
  - EYE INFECTION [None]
  - VISUAL ACUITY REDUCED [None]
  - VISUAL FIELD DEFECT [None]
